FAERS Safety Report 8257652-8 (Version None)
Quarter: 2012Q2

REPORT INFORMATION
  Report Type: 
  Country: None (occurrence: None)
  Receive Date: 20120403
  Receipt Date: 20120402
  Transmission Date: 20120825
  Serious: Yes (Other)
  Sender: FDA-Public Use
  Company Number: ES-MERCK-1204ESP00003

PATIENT
  Age: 10 Month
  Sex: Female

DRUGS (2)
  1. SINGULAIR [Suspect]
     Indication: BRONCHITIS
     Route: 048
     Dates: start: 20111212, end: 20120111
  2. BUDESONIDE [Suspect]
     Indication: BRONCHITIS
     Route: 055
     Dates: start: 20111212

REACTIONS (1)
  - PETECHIAE [None]
